FAERS Safety Report 11474580 (Version 1)
Quarter: 2015Q3

REPORT INFORMATION
  Report Type: Spontaneous
  Country: US (occurrence: None)
  Receive Date: 20150908
  Receipt Date: 20150908
  Transmission Date: 20151125
  Serious: No
  Sender: FDA-Public Use
  Company Number: None

PATIENT
  Age: 57 Year
  Sex: Male
  Weight: 108.86 kg

DRUGS (9)
  1. ENABLEX [Concomitant]
     Active Substance: DARIFENACIN\DARIFENACIN HYDROBROMIDE
  2. LOSARTAN. [Concomitant]
     Active Substance: LOSARTAN
  3. JARIANCE [Concomitant]
  4. BYDUREON [Suspect]
     Active Substance: EXENATIDE
     Indication: TYPE 2 DIABETES MELLITUS
     Dosage: GIVEN INTO/UNDER THE SKIN
     Dates: start: 20150731, end: 20150904
  5. METFORMIN [Concomitant]
     Active Substance: METFORMIN HYDROCHLORIDE
  6. VITAMIN D [Concomitant]
     Active Substance: CHOLECALCIFEROL
  7. VASCEPA [Concomitant]
     Active Substance: ETHYL ICOSAPENTATE
  8. ALFUZOSIN HCL [Concomitant]
     Active Substance: ALFUZOSIN HYDROCHLORIDE
  9. VIT B 12 [Concomitant]

REACTIONS (3)
  - Injection site pain [None]
  - Abdominal pain upper [None]
  - Injection site reaction [None]

NARRATIVE: CASE EVENT DATE: 20150906
